FAERS Safety Report 23357250 (Version 1)
Quarter: 2024Q1

REPORT INFORMATION
  Report Type: Spontaneous
  Country: US (occurrence: US)
  Receive Date: 20240102
  Receipt Date: 20240102
  Transmission Date: 20240410
  Serious: Yes (Other)
  Sender: FDA-Public Use
  Company Number: US-SCIEGENP-2023SCLIT00852

PATIENT
  Age: 43 Year
  Sex: Male

DRUGS (5)
  1. CLOPIDOGREL [Suspect]
     Active Substance: CLOPIDOGREL BISULFATE
     Indication: Ischaemic stroke
     Route: 065
  2. ASPIRIN [Concomitant]
     Active Substance: ASPIRIN
     Indication: Ischaemic stroke
     Route: 065
  3. ATORVASTATIN [Concomitant]
     Active Substance: ATORVASTATIN
     Indication: Ischaemic stroke
     Route: 065
  4. TYLENOL [Concomitant]
     Active Substance: ACETAMINOPHEN
     Indication: Pain
     Route: 065
  5. CAPSAICIN [Concomitant]
     Active Substance: CAPSAICIN
     Indication: Pain
     Route: 061

REACTIONS (1)
  - Polyarthritis [Recovered/Resolved]
